FAERS Safety Report 8763864 (Version 1)
Quarter: 2012Q4

REPORT INFORMATION
  Report Type: 
  Country: IL (occurrence: IL)
  Receive Date: 20120831
  Receipt Date: 20120831
  Transmission Date: 20130627
  Serious: Yes (Hospitalization, Other)
  Sender: FDA-Public Use
  Company Number: PHHY2012IL075080

PATIENT
  Age: 78 Year
  Sex: Female

DRUGS (11)
  1. EXELON [Suspect]
     Indication: DEMENTIA ALZHEIMER^S TYPE
     Dosage: 1.5 mg, BID
     Route: 048
     Dates: start: 20120610, end: 20120722
  2. EXELON PATCH [Suspect]
     Indication: DEMENTIA ALZHEIMER^S TYPE
     Dosage: 4.6mg/24hours
     Route: 062
     Dates: start: 20120722, end: 20120727
  3. HYDROCHLOROTHIAZIDE [Concomitant]
     Route: 047
  4. ISOSORBIDE MONONITRATE [Concomitant]
     Route: 048
  5. ESCITALOPRAM OXALATE [Concomitant]
     Indication: DEPRESSION
     Route: 048
  6. ENALAPRIL MALEATE [Concomitant]
     Route: 048
  7. SIMVASTATIN [Concomitant]
     Route: 048
  8. CALCIUM WITH VITAMIN D [Concomitant]
     Route: 048
  9. ALENDRONIC ACID [Concomitant]
     Dosage: 70 mg, QW
     Route: 048
  10. TROSPIUM CHLORIDE [Concomitant]
     Indication: URINARY INCONTINENCE
     Route: 048
  11. ACETYLSALICYLIC ACID [Concomitant]
     Route: 048

REACTIONS (2)
  - Cardiac arrest [Unknown]
  - Heart rate decreased [Unknown]
